FAERS Safety Report 17276930 (Version 1)
Quarter: 2020Q1

REPORT INFORMATION
  Report Type: Spontaneous
  Country: US (occurrence: US)
  Receive Date: 20191226
  Receipt Date: 20191226
  Transmission Date: 20200409
  Serious: Yes (Hospitalization)
  Sender: FDA-Public Use
  Company Number: None

PATIENT
  Age: 75 Year
  Sex: Male

DRUGS (1)
  1. CLINDAMYCIN (CLINDAMYCIN HCL 300MG CAP) [Suspect]
     Active Substance: CLINDAMYCIN HYDROCHLORIDE
     Indication: SKIN LACERATION
     Route: 048
     Dates: start: 20191203, end: 20191203

REACTIONS (4)
  - Urticaria [None]
  - Pruritus [None]
  - Dyspnoea [None]
  - Swelling [None]

NARRATIVE: CASE EVENT DATE: 20191212
